FAERS Safety Report 5503598-5 (Version None)
Quarter: 2007Q4

REPORT INFORMATION
  Report Type: 
  Country: None (occurrence: None)
  Receive Date: 20071029
  Receipt Date: 20071019
  Transmission Date: 20080405
  Serious: Yes (Life-Threatening, Hospitalization, Other)
  Sender: FDA-Public Use
  Company Number: 2007SP021200

PATIENT
  Age: 79 Year
  Sex: Female

DRUGS (7)
  1. NITRO-DUR [Suspect]
     Indication: ISCHAEMIC CARDIOMYOPATHY
     Dosage: 120 MG;
     Dates: start: 20050101
  2. EXELON [Suspect]
     Indication: DEMENTIA
     Dosage: PO
     Route: 048
     Dates: start: 20070330, end: 20070630
  3. ATENOLOL [Suspect]
     Indication: ISCHAEMIC CARDIOMYOPATHY
     Dates: start: 20050101, end: 20070630
  4. DILTIAZEM HYDROCHLORIDE [Suspect]
     Indication: ISCHAEMIC CARDIOMYOPATHY
     Dosage: 60 MG;
     Dates: start: 20050101, end: 20070630
  5. PREDNISONE [Concomitant]
  6. ACETYLSALICYLIC ACID SRT [Concomitant]
  7. ATORVASTATIN CALCIUM [Concomitant]

REACTIONS (4)
  - BRADYCARDIA [None]
  - DRUG INTERACTION [None]
  - SINUS ARREST [None]
  - SYNCOPE [None]
